FAERS Safety Report 20559092 (Version 3)
Quarter: 2022Q2

REPORT INFORMATION
  Report Type: Report from Study
  Country: CA (occurrence: CA)
  Receive Date: 20220307
  Receipt Date: 20220530
  Transmission Date: 20220721
  Serious: Yes (Other)
  Sender: FDA-Public Use
  Company Number: CA-TAKEDA-2022TUS014498

PATIENT
  Age: 33 Year
  Sex: Male

DRUGS (5)
  1. VEDOLIZUMAB [Suspect]
     Active Substance: VEDOLIZUMAB
     Indication: Colitis ulcerative
     Dosage: 300 MILLIGRAM
     Route: 042
     Dates: start: 20210916
  2. VEDOLIZUMAB [Suspect]
     Active Substance: VEDOLIZUMAB
     Dosage: 300 MILLIGRAM, Q4WEEKS
     Route: 042
     Dates: start: 20220321
  3. VEDOLIZUMAB [Suspect]
     Active Substance: VEDOLIZUMAB
     Dosage: 300 MILLIGRAM, Q4WEEKS
     Route: 042
     Dates: end: 20220516
  4. Cortiment [Concomitant]
     Dosage: 9 MILLIGRAM
     Dates: start: 20210604
  5. PENTASA [Concomitant]
     Active Substance: MESALAMINE
     Dosage: 1 GRAM

REACTIONS (9)
  - Haematochezia [Unknown]
  - Cytomegalovirus infection [Unknown]
  - Colitis ulcerative [Unknown]
  - Frequent bowel movements [Unknown]
  - Mucous stools [Unknown]
  - Abdominal pain [Unknown]
  - Anaemia [Unknown]
  - Defaecation urgency [Unknown]
  - Off label use [Unknown]

NARRATIVE: CASE EVENT DATE: 20220321
